FAERS Safety Report 6846968-5 (Version None)
Quarter: 2010Q3

REPORT INFORMATION
  Report Type: 
  Country: None (occurrence: None)
  Receive Date: 20100713
  Receipt Date: 20100709
  Transmission Date: 20110219
  Serious: Yes (Other)
  Sender: FDA-Public Use
  Company Number: GRT2010-13970

PATIENT
  Sex: Female

DRUGS (11)
  1. LIDOCAINE HCL [Suspect]
     Indication: PAIN IN EXTREMITY
     Dosage: 3 PATCHES OVER 5 MONTHS
  2. CINNARIZINE [Concomitant]
  3. CLONAZEPAM [Concomitant]
  4. CALCIUM CARBONATE ETIDRONATE DISODIUM [Concomitant]
  5. FLUTICASONE PROPIONATE [Concomitant]
  6. FLUTICASONE PROPIONATE [Concomitant]
  7. AMINOPHYLLINE [Concomitant]
  8. PREDONISOLONE [Concomitant]
  9. SALMETEROL [Concomitant]
  10. TERBUTELINE [Concomitant]
  11. WARFARIN SODIUM [Concomitant]

REACTIONS (3)
  - BLISTER [None]
  - CHEMICAL BURN OF SKIN [None]
  - DRUG INEFFECTIVE FOR UNAPPROVED INDICATION [None]
